FAERS Safety Report 5776028-6 (Version None)
Quarter: 2008Q2

REPORT INFORMATION
  Report Type: 
  Country: None (occurrence: None)
  Receive Date: 20080617
  Receipt Date: 20080612
  Transmission Date: 20081010
  Serious: Yes (Death, Hospitalization)
  Sender: FDA-Public Use
  Company Number: US-MERCK-0708USA04117

PATIENT
  Age: 54 Year
  Sex: Male

DRUGS (6)
  1. PRINIVIL [Suspect]
     Indication: HYPERTENSION
     Route: 048
  2. AMLODIPINE BESYLATE [Concomitant]
     Indication: HYPERTENSION
     Route: 065
  3. SPIRONOLACTONE [Concomitant]
     Indication: FLUID RETENTION
     Route: 065
  4. FUROSEMIDE [Concomitant]
     Indication: FLUID RETENTION
     Route: 065
  5. BLOOD, WHOLE [Suspect]
     Indication: LIVER TRANSPLANT
     Route: 065
  6. LACTULOSE [Concomitant]
     Indication: PROPHYLAXIS
     Route: 065

REACTIONS (10)
  - ANAPHYLACTIC SHOCK [None]
  - CHOLESTASIS [None]
  - CHRONIC HEPATIC FAILURE [None]
  - DEATH [None]
  - HEPATIC ENCEPHALOPATHY [None]
  - HEPATIC FUNCTION ABNORMAL [None]
  - INJURY [None]
  - MESENTERIC VEIN THROMBOSIS [None]
  - PORTAL VEIN THROMBOSIS [None]
  - TRANSFUSION REACTION [None]
